FAERS Safety Report 8815958 (Version 7)
Quarter: 2014Q2

REPORT INFORMATION
  Report Type: Report from Study
  Country: GB (occurrence: GB)
  Receive Date: 20120928
  Receipt Date: 20140404
  Transmission Date: 20141212
  Serious: Yes (Death, Hospitalization)
  Sender: FDA-Public Use
  Company Number: GB-ROCHE-1071813

PATIENT
  Age: 47 Year
  Sex: Female
  Weight: 47.3 kg

DRUGS (2)
  1. VEMURAFENIB [Suspect]
     Indication: MALIGNANT MELANOMA
     Route: 048
     Dates: start: 20120314, end: 20120521
  2. ORAMORPH SR [Concomitant]
     Route: 065
     Dates: start: 20120305, end: 20120521

REACTIONS (1)
  - Cerebral haemorrhage [Fatal]
